FAERS Safety Report 7251017-3 (Version None)
Quarter: 2011Q1

REPORT INFORMATION
  Report Type: 
  Country: None (occurrence: None)
  Receive Date: 20110128
  Receipt Date: 20110126
  Transmission Date: 20110831
  Serious: Yes (Hospitalization)
  Sender: FDA-Public Use
  Company Number: B0696334A

PATIENT
  Sex: Female

DRUGS (2)
  1. NIMESULIDE [Suspect]
     Indication: TOOTH ABSCESS
     Dosage: 100MG PER DAY
     Route: 048
     Dates: start: 20110118, end: 20110120
  2. AUGMENTIN '125' [Suspect]
     Indication: TOOTH ABSCESS
     Dosage: 2G PER DAY
     Route: 048
     Dates: start: 20110118, end: 20110120

REACTIONS (3)
  - URTICARIA [None]
  - PALPITATIONS [None]
  - DYSPNOEA [None]
